FAERS Safety Report 5458516-5 (Version None)
Quarter: 2007Q3

REPORT INFORMATION
  Report Type: 
  Country: None (occurrence: None)
  Receive Date: 20070919
  Receipt Date: 20070910
  Transmission Date: 20080115
  Serious: Yes (Other)
  Sender: FDA-Public Use
  Company Number: CA-JNJFOC-20070705970

PATIENT
  Sex: Male

DRUGS (8)
  1. REMICADE [Suspect]
     Route: 042
  2. REMICADE [Suspect]
     Route: 042
  3. REMICADE [Suspect]
     Route: 042
  4. REMICADE [Suspect]
     Indication: CROHN'S DISEASE
     Route: 042
  5. PREDNISONE [Concomitant]
     Route: 048
  6. METHOTREXATE [Concomitant]
     Route: 058
  7. FOLIC ACID [Concomitant]
     Route: 048
  8. CELEBREX [Concomitant]
     Route: 048

REACTIONS (1)
  - SKIN LESION [None]
